FAERS Safety Report 19189021 (Version 1)
Quarter: 2021Q2

REPORT INFORMATION
  Report Type: Spontaneous
  Country: US (occurrence: US)
  Receive Date: 20210427
  Receipt Date: 20210427
  Transmission Date: 20210717
  Serious: Yes (Life-Threatening, Other)
  Sender: FDA-Public Use
  Company Number: None

PATIENT

DRUGS (14)
  1. CALCIUM?VIT D [Concomitant]
  2. VIT D [Concomitant]
     Active Substance: VITAMIN D NOS
  3. VALSARTAN. [Concomitant]
     Active Substance: VALSARTAN
  4. OMEPRAZOLE. [Concomitant]
     Active Substance: OMEPRAZOLE
  5. DILTIAZEM. [Concomitant]
     Active Substance: DILTIAZEM
  6. FERRO SEQUELS [Concomitant]
  7. ELIQUIS [Suspect]
     Active Substance: APIXABAN
     Indication: ATRIAL FIBRILLATION
     Dosage: ?          QUANTITY:1 DF DOSAGE FORM;?
     Route: 048
     Dates: start: 20210215, end: 20210408
  8. OXYBUTYNIN. [Concomitant]
     Active Substance: OXYBUTYNIN CHLORIDE
  9. METOPROLOL. [Concomitant]
     Active Substance: METOPROLOL
  10. COENZYME Q10 [Concomitant]
     Active Substance: DIETARY SUPPLEMENT\UBIDECARENONE
  11. XARELTO [Concomitant]
     Active Substance: RIVAROXABAN
  12. DOCUSATE [Concomitant]
     Active Substance: DOCUSATE
  13. CRESTOR [Concomitant]
     Active Substance: ROSUVASTATIN CALCIUM
  14. DULOXETINE. [Concomitant]
     Active Substance: DULOXETINE

REACTIONS (2)
  - Dyspnoea [None]
  - Wheezing [None]
